FAERS Safety Report 18410732 (Version 2)
Quarter: 2020Q4

REPORT INFORMATION
  Report Type: Spontaneous
  Country: US (occurrence: US)
  Receive Date: 20201021
  Receipt Date: 20201118
  Transmission Date: 20210114
  Serious: No
  Sender: FDA-Public Use
  Company Number: US-APOTEX-2020AP018948

PATIENT
  Sex: Female

DRUGS (1)
  1. FENTANYL TRANSDERMAL SYSTEM [Suspect]
     Active Substance: FENTANYL
     Indication: PAIN
     Dosage: UNK
     Route: 062

REACTIONS (11)
  - Frequent bowel movements [Recovered/Resolved]
  - Drug screen negative [Recovered/Resolved]
  - Product packaging difficult to open [Unknown]
  - Product adhesion issue [Unknown]
  - Yawning [Recovered/Resolved]
  - Product use complaint [Unknown]
  - Nausea [Recovered/Resolved]
  - Drug ineffective [Unknown]
  - Product packaging issue [Unknown]
  - Product substitution issue [Unknown]
  - Withdrawal syndrome [Recovered/Resolved]
